FAERS Safety Report 16606649 (Version 2)
Quarter: 2024Q2

REPORT INFORMATION
  Report Type: Spontaneous
  Country: US (occurrence: None)
  Receive Date: 20190722
  Receipt Date: 20240511
  Transmission Date: 20240715
  Serious: Yes (Hospitalization)
  Sender: FDA-Public Use
  Company Number: US-ROCHE-2358069

PATIENT
  Age: 35 Year
  Sex: Female

DRUGS (12)
  1. PULMOZYME [Suspect]
     Active Substance: DORNASE ALFA
     Indication: Product used for unknown indication
     Route: 055
  2. AZTREONAM LYSINE [Suspect]
     Active Substance: AZTREONAM LYSINE
     Indication: Cystic fibrosis
     Dosage: ONGOING: YES
     Dates: start: 20140624
  3. CIPROFLOXACIN [Suspect]
     Active Substance: CIPROFLOXACIN
     Indication: Product used for unknown indication
     Route: 065
  4. DOXYCYCLINE [Suspect]
     Active Substance: DOXYCYCLINE
     Indication: Product used for unknown indication
     Route: 065
  5. CREON [Suspect]
     Active Substance: PANCRELIPASE AMYLASE\PANCRELIPASE LIPASE\PANCRELIPASE PROTEASE
     Indication: Cystic fibrosis
     Dosage: 7 24000 UNITS CAPSULE THRICE A DAY BEFORE MEALS AND 3 24000 UNITS CAPSULES WITH SNACKS
     Route: 048
     Dates: start: 20140211
  6. ADVAIR HFA [Concomitant]
     Active Substance: FLUTICASONE PROPIONATE\SALMETEROL XINAFOATE
  7. BUPROPION [Concomitant]
     Active Substance: BUPROPION
  8. NAPROXEN [Concomitant]
     Active Substance: NAPROXEN
  9. NIFEDIPINE [Concomitant]
     Active Substance: NIFEDIPINE
  10. NALOXONE [Concomitant]
     Active Substance: NALOXONE
  11. CLONAZEPAM [Concomitant]
     Active Substance: CLONAZEPAM
  12. OXYCODONE [Concomitant]
     Active Substance: OXYCODONE\OXYCODONE HYDROCHLORIDE

REACTIONS (3)
  - Arthritis infective [Recovered/Resolved]
  - Drug hypersensitivity [Not Recovered/Not Resolved]
  - Cystic fibrosis [Not Recovered/Not Resolved]

NARRATIVE: CASE EVENT DATE: 20190430
